FAERS Safety Report 10042235 (Version 2)
Quarter: 2014Q2

REPORT INFORMATION
  Report Type: Report from Study
  Country: JP (occurrence: JP)
  Receive Date: 20140327
  Receipt Date: 20140502
  Transmission Date: 20141212
  Serious: No
  Sender: FDA-Public Use
  Company Number: JP-GLAXOSMITHKLINE-B0979363A

PATIENT
  Age: 6 Decade
  Sex: Male
  Weight: 67 kg

DRUGS (6)
  1. VOTRIENT 200MG [Suspect]
     Indication: SYNOVIAL SARCOMA
     Dosage: 800MG PER DAY
     Route: 048
     Dates: start: 20130126, end: 20130128
  2. VOTRIENT 200MG [Suspect]
     Indication: SYNOVIAL SARCOMA
     Dosage: 600MG PER DAY
     Route: 048
     Dates: start: 20130219, end: 20130408
  3. VOTRIENT 200MG [Suspect]
     Indication: SYNOVIAL SARCOMA
     Dosage: 800MG PER DAY
     Route: 048
     Dates: start: 20130409, end: 20130701
  4. ESOMEPRAZOLE MAGNESIUM [Concomitant]
     Indication: OESOPHAGITIS
     Route: 048
     Dates: end: 20130924
  5. PERDIPINE [Concomitant]
     Indication: HYPERTENSION
     Route: 048
     Dates: end: 20130201
  6. CALBLOCK [Concomitant]
     Indication: HYPERTENSION
     Route: 048
     Dates: start: 20130203, end: 20130924

REACTIONS (4)
  - Hypertension [Recovering/Resolving]
  - Hypothyroidism [Not Recovered/Not Resolved]
  - Oesophagitis [Recovering/Resolving]
  - Proteinuria [Unknown]
